FAERS Safety Report 17451858 (Version 1)
Quarter: 2020Q1

REPORT INFORMATION
  Report Type: Spontaneous
  Country: US (occurrence: US)
  Receive Date: 20200224
  Receipt Date: 20200224
  Transmission Date: 20200409
  Serious: Yes (Other)
  Sender: FDA-Public Use
  Company Number: None

PATIENT
  Age: 74 Year
  Sex: Female
  Weight: 84.82 kg

DRUGS (5)
  1. ATORVASTATIN [Concomitant]
     Active Substance: ATORVASTATIN
     Dates: end: 20180821
  2. METOPROLOL TARTRATE. [Concomitant]
     Active Substance: METOPROLOL TARTRATE
     Dates: end: 20180821
  3. VERZENIO [Suspect]
     Active Substance: ABEMACICLIB
     Indication: BREAST CANCER
     Route: 048
     Dates: start: 20180916, end: 20200224
  4. ASPIRIN. [Concomitant]
     Active Substance: ASPIRIN
     Dates: end: 20180821
  5. CAPECITABINE. [Concomitant]
     Active Substance: CAPECITABINE
     Dates: start: 20150407, end: 20180521

REACTIONS (1)
  - Liver function test increased [None]
